FAERS Safety Report 10341581 (Version 1)
Quarter: 2014Q3

REPORT INFORMATION
  Report Type: Spontaneous
  Country: GB (occurrence: GB)
  Receive Date: 20140725
  Receipt Date: 20140725
  Transmission Date: 20150326
  Serious: Yes (Other)
  Sender: FDA-Public Use
  Company Number: GB-AMGEN INC.-GBRSP2014054406

PATIENT
  Age: 62 Year
  Sex: Female

DRUGS (5)
  1. PROLIA [Suspect]
     Active Substance: DENOSUMAB
     Indication: OSTEOPOROSIS POSTMENOPAUSAL
     Dosage: 60 MG, UNK
     Route: 058
     Dates: start: 20140623, end: 20140623
  2. COLECALCIFEROL [Concomitant]
     Active Substance: CHOLECALCIFEROL
  3. BECLOMETHASONE                     /00212602/ [Concomitant]
  4. OMEPRAZOLE. [Concomitant]
     Active Substance: OMEPRAZOLE
  5. MEBEVERINE [Concomitant]
     Active Substance: MEBEVERINE

REACTIONS (13)
  - Feeling abnormal [Recovered/Resolved]
  - Paraesthesia [Recovering/Resolving]
  - Pain [Recovering/Resolving]
  - Pain in extremity [Recovering/Resolving]
  - Bone pain [Unknown]
  - Facial pain [Recovering/Resolving]
  - Malaise [Unknown]
  - Musculoskeletal disorder [Recovered/Resolved]
  - Insomnia [Recovered/Resolved]
  - Pain in jaw [Recovering/Resolving]
  - Grip strength decreased [Recovered/Resolved]
  - Influenza like illness [Recovering/Resolving]
  - Hot flush [Recovered/Resolved]

NARRATIVE: CASE EVENT DATE: 20140628
